FAERS Safety Report 9140072 (Version 1)
Quarter: 2013Q1

REPORT INFORMATION
  Report Type: Spontaneous
  Country: US (occurrence: US)
  Receive Date: 20130305
  Receipt Date: 20130305
  Transmission Date: 20140127
  Serious: Yes (Hospitalization)
  Sender: FDA-Public Use
  Company Number: US-FRI-1000041621

PATIENT
  Sex: Female
  Weight: 90.72 kg

DRUGS (5)
  1. VIIBRYD [Suspect]
     Indication: ANXIETY
     Dosage: 10MG
     Route: 048
  2. BENICAR [Suspect]
     Indication: HYPERTENSION
  3. DEXILANT [Concomitant]
     Dosage: 60MG
     Route: 048
  4. CRESTOR [Concomitant]
     Dosage: 20MG
     Route: 048
  5. ESTRATEST HS [Concomitant]
     Dosage: DAILY

REACTIONS (7)
  - Adverse drug reaction [Recovered/Resolved]
  - Serotonin syndrome [Recovered/Resolved]
  - Feeling abnormal [Recovered/Resolved]
  - Blood pressure increased [Recovered/Resolved]
  - Dizziness [Recovered/Resolved]
  - Syncope [Recovered/Resolved]
  - Off label use [Recovered/Resolved]
